FAERS Safety Report 19260388 (Version 2)
Quarter: 2021Q2

REPORT INFORMATION
  Report Type: Report from Study
  Country: None (occurrence: US)
  Receive Date: 20210515
  Receipt Date: 20210602
  Transmission Date: 20210717
  Serious: Yes (Other)
  Sender: FDA-Public Use
  Company Number: US-ABBVIE-20K-163-3453771-00

PATIENT
  Age: 63 Year
  Sex: Female

DRUGS (4)
  1. HUMIRA [Suspect]
     Active Substance: ADALIMUMAB
     Route: 058
     Dates: start: 20210501
  2. HUMIRA [Suspect]
     Active Substance: ADALIMUMAB
     Indication: RHEUMATOID ARTHRITIS
     Route: 058
     Dates: start: 2018
  3. HUMIRA [Suspect]
     Active Substance: ADALIMUMAB
     Indication: SCLERITIS
     Route: 058
     Dates: start: 202005, end: 202104
  4. COVID?19 VACCINE NOS. [Suspect]
     Active Substance: COVID-19 VACCINE NOS
     Indication: COVID-19 IMMUNISATION
     Route: 030
     Dates: start: 20210213, end: 20210213

REACTIONS (20)
  - Off label use [Unknown]
  - Arthralgia [Recovering/Resolving]
  - Drug ineffective [Unknown]
  - Cystoid macular oedema [Unknown]
  - Retinal disorder [Recovering/Resolving]
  - Mobility decreased [Unknown]
  - Eye pain [Unknown]
  - Blindness [Unknown]
  - Joint swelling [Unknown]
  - Loss of personal independence in daily activities [Unknown]
  - Vision blurred [Unknown]
  - Pain in extremity [Recovered/Resolved]
  - Scleritis [Unknown]
  - Periarthritis [Unknown]
  - Ocular hyperaemia [Recovering/Resolving]
  - Pain in extremity [Unknown]
  - Retinal oedema [Recovering/Resolving]
  - Eye inflammation [Unknown]
  - Pain [Recovered/Resolved]
  - Peripheral swelling [Unknown]

NARRATIVE: CASE EVENT DATE: 2018
